FAERS Safety Report 4596468-0 (Version None)
Quarter: 2005Q1

REPORT INFORMATION
  Report Type: 
  Country: None (occurrence: None)
  Receive Date: 20050302
  Receipt Date: 20050223
  Transmission Date: 20050727
  Serious: Yes (Disabling, Other)
  Sender: FDA-Public Use
  Company Number: US-JNJFOC-20050206217

PATIENT
  Sex: Female

DRUGS (3)
  1. REMICADE [Suspect]
     Indication: CROHN'S DISEASE
     Route: 042
  2. REMICADE [Suspect]
     Indication: ANKYLOSING SPONDYLITIS
     Route: 042
  3. STEROIDS [Concomitant]
     Route: 042

REACTIONS (3)
  - BLINDNESS [None]
  - OPTIC NEURITIS [None]
  - SARCOIDOSIS [None]
